FAERS Safety Report 25258911 (Version 2)
Quarter: 2025Q2

REPORT INFORMATION
  Report Type: Report from Study
  Country: US (occurrence: US)
  Receive Date: 20250501
  Receipt Date: 20250513
  Transmission Date: 20250717
  Serious: Yes (Other)
  Sender: ROCHE
  Company Number: US-ROCHE-10000136145

PATIENT
  Age: 40 Year
  Sex: Female
  Weight: 62 kg

DRUGS (23)
  1. OCREVUS [Suspect]
     Active Substance: OCRELIZUMAB
     Indication: Primary progressive multiple sclerosis
     Route: 065
     Dates: start: 2023
  2. OCREVUS ZUNOVO [Suspect]
     Active Substance: HYALURONIDASE-OCSQ\OCRELIZUMAB
     Indication: Primary progressive multiple sclerosis
     Route: 048
  3. ELETRIPTAN [Concomitant]
     Active Substance: ELETRIPTAN
  4. CYANOCOBALAMIN [Concomitant]
     Active Substance: CYANOCOBALAMIN
  5. ASCORBIC ACID [Concomitant]
     Active Substance: ASCORBIC ACID
  6. MENAQUINONE-7;NATTOKINASE [Concomitant]
  7. OMEGA-3 FATTY ACIDS [Concomitant]
     Active Substance: OMEGA-3 FATTY ACIDS
  8. AIMOVIG [Concomitant]
     Active Substance: ERENUMAB-AOOE
  9. MAGNESIUM [Concomitant]
     Active Substance: MAGNESIUM
  10. TOPIRAMATE [Concomitant]
     Active Substance: TOPIRAMATE
  11. PROPRANOLOL [Concomitant]
     Active Substance: PROPRANOLOL HYDROCHLORIDE
  12. BOTOX [Concomitant]
     Active Substance: ONABOTULINUMTOXINA
  13. RELPAX [Concomitant]
     Active Substance: ELETRIPTAN HYDROBROMIDE
  14. VITAMIN B12 [Concomitant]
     Active Substance: CYANOCOBALAMIN
  15. VITAMIN C [Concomitant]
     Active Substance: ASCORBIC ACID
  16. MENAQUINONE 6 [Concomitant]
     Active Substance: MENAQUINONE 6
  17. OMEGA-3 ACIDS [Concomitant]
     Active Substance: OMEGA-3 FATTY ACIDS
  18. COENZYME Q10 [Concomitant]
     Active Substance: DIETARY SUPPLEMENT\UBIDECARENONE
  19. VOLNEA [Concomitant]
     Active Substance: DESOGESTREL\ETHINYL ESTRADIOL
  20. PRASTERONE [Concomitant]
     Active Substance: PRASTERONE
  21. CLARINEX [Concomitant]
     Active Substance: DESLORATADINE
     Route: 048
     Dates: start: 20241113, end: 20241113
  22. DECADRON [Concomitant]
     Active Substance: DEXAMETHASONE
     Route: 048
  23. NURTEC ODT [Concomitant]
     Active Substance: RIMEGEPANT SULFATE
     Route: 048

REACTIONS (5)
  - Migraine [Unknown]
  - Demyelination [Unknown]
  - Disease progression [Unknown]
  - Influenza [Unknown]
  - Pneumonia [Unknown]
